FAERS Safety Report 10074174 (Version 2)
Quarter: 2016Q2

REPORT INFORMATION
  Report Type: Spontaneous
  Country: US (occurrence: US)
  Receive Date: 20140411
  Receipt Date: 20160406
  Transmission Date: 20160815
  Serious: No
  Sender: FDA-Public Use
  Company Number: US-SA-2014SA032955

PATIENT
  Age: 65 Year
  Sex: Female

DRUGS (2)
  1. EFFEXOR [Concomitant]
     Active Substance: VENLAFAXINE HYDROCHLORIDE
     Indication: ANXIETY
     Route: 065
     Dates: start: 2008
  2. ALLEGRA-D [Suspect]
     Active Substance: FEXOFENADINE\PSEUDOEPHEDRINE
     Indication: MULTIPLE ALLERGIES
     Route: 065

REACTIONS (7)
  - Cough [Unknown]
  - Rhinorrhoea [Unknown]
  - Sneezing [Unknown]
  - Nasopharyngitis [Not Recovered/Not Resolved]
  - Sinus congestion [Recovered/Resolved]
  - Sleep disorder [Recovered/Resolved]
  - Medication residue present [Unknown]

NARRATIVE: CASE EVENT DATE: 20140303
